FAERS Safety Report 10369580 (Version 2)
Quarter: 2015Q4

REPORT INFORMATION
  Report Type: Spontaneous
  Country: US (occurrence: US)
  Receive Date: 20140807
  Receipt Date: 20151013
  Transmission Date: 20160304
  Serious: No
  Sender: FDA-Public Use
  Company Number: US-AMGEN-USASP2014022441

PATIENT
  Age: 41 Year
  Sex: Female

DRUGS (2)
  1. NEUPOGEN [Suspect]
     Active Substance: FILGRASTIM
     Indication: PRODUCT USED FOR UNKNOWN INDICATION
     Dosage: UNK
     Route: 065
  2. ADRIAMYCIN [Concomitant]
     Active Substance: DOXORUBICIN HYDROCHLORIDE
     Indication: BREAST CANCER
     Dosage: UNK

REACTIONS (1)
  - Injection site pain [Unknown]
